FAERS Safety Report 7719433-0 (Version None)
Quarter: 2011Q3

REPORT INFORMATION
  Report Type: 
  Country: None (occurrence: None)
  Receive Date: 20110830
  Receipt Date: 20110819
  Transmission Date: 20111222
  Serious: Yes (Other)
  Sender: FDA-Public Use
  Company Number: PHEH2011US01557

PATIENT
  Age: 34 Year
  Sex: Female

DRUGS (3)
  1. GILENYA [Suspect]
     Indication: MULTIPLE SCLEROSIS
     Dosage: 0.5 MG, QD
     Route: 048
     Dates: start: 20110701, end: 20110812
  2. DEPAKOTE ER [Concomitant]
     Indication: BIPOLAR DISORDER
     Dosage: 500 MG, QD
  3. SYNTHETIC ESTROGENS [Concomitant]
     Indication: HORMONE LEVEL ABNORMAL
     Dosage: 1.5 UKN, QD

REACTIONS (5)
  - GALLBLADDER PAIN [None]
  - PANCYTOPENIA [None]
  - WHITE BLOOD CELL COUNT DECREASED [None]
  - NEUTROPENIA [None]
  - HAEMOGLOBIN DECREASED [None]
